FAERS Safety Report 8503839-6 (Version None)
Quarter: 2012Q3

REPORT INFORMATION
  Report Type: 
  Country: None (occurrence: None)
  Receive Date: 20120702
  Receipt Date: 20120618
  Transmission Date: 20120928
  Serious: Yes (Other)
  Sender: FDA-Public Use
  Company Number: 2012AP001571

PATIENT
  Age: 65 Year
  Sex: Male

DRUGS (5)
  1. AZELASTINE HYDROCHLORIDE [Suspect]
     Indication: RHINITIS ALLERGIC
     Dosage: 2 SPR;BID;NAS
     Route: 045
     Dates: start: 20111101, end: 20120523
  2. LEVOTHYROXINE SODIUM [Concomitant]
  3. LISINOPRIL [Concomitant]
  4. SIMVASTATIN [Concomitant]
  5. TAMSULOSIN HYDROCHLORIDE [Concomitant]

REACTIONS (3)
  - VISUAL ACUITY REDUCED [None]
  - HERNIA [None]
  - PROSTATIC SPECIFIC ANTIGEN INCREASED [None]
